FAERS Safety Report 19871079 (Version 1)
Quarter: 2021Q3

REPORT INFORMATION
  Report Type: Report from Study
  Country: US (occurrence: US)
  Receive Date: 20210923
  Receipt Date: 20210923
  Transmission Date: 20211014
  Serious: Yes (Hospitalization, Other)
  Sender: FDA-Public Use
  Company Number: US-TAIHO ONCOLOGY  INC-EU-2021-02631

PATIENT
  Age: 54 Year
  Sex: Female
  Weight: 74.46 kg

DRUGS (5)
  1. LONSURF [Suspect]
     Active Substance: TIPIRACIL HYDROCHLORIDE\TRIFLURIDINE
     Indication: METASTASES TO LIVER
  2. OMEPRAZOLE. [Suspect]
     Active Substance: OMEPRAZOLE
     Indication: PRODUCT USED FOR UNKNOWN INDICATION
  3. LONSURF [Suspect]
     Active Substance: TIPIRACIL HYDROCHLORIDE\TRIFLURIDINE
     Indication: RECTAL CANCER
     Dosage: CURRENT CYCLE UNKNOWN
     Route: 048
     Dates: start: 2021
  4. LONSURF [Suspect]
     Active Substance: TIPIRACIL HYDROCHLORIDE\TRIFLURIDINE
     Indication: METASTASES TO LYMPH NODES
  5. STIVARGA [Suspect]
     Active Substance: REGORAFENIB
     Indication: PRODUCT USED FOR UNKNOWN INDICATION

REACTIONS (13)
  - Pulmonary embolism [Unknown]
  - Pyrexia [Unknown]
  - Blister [Unknown]
  - Blood pressure fluctuation [Unknown]
  - Insomnia [Unknown]
  - Disease progression [Unknown]
  - Hypothyroidism [Unknown]
  - Sepsis [Unknown]
  - Flatulence [Unknown]
  - Weight decreased [Unknown]
  - Feeding disorder [Unknown]
  - Abdominal pain upper [Unknown]
  - Fatigue [Unknown]

NARRATIVE: CASE EVENT DATE: 2021
